FAERS Safety Report 25752603 (Version 2)
Quarter: 2025Q4

REPORT INFORMATION
  Report Type: Spontaneous
  Country: US (occurrence: US)
  Receive Date: 20250902
  Receipt Date: 20251115
  Transmission Date: 20260118
  Serious: Yes (Other)
  Sender: ABBVIE
  Company Number: US-ABBVIE-6438891

PATIENT
  Age: 36 Year
  Sex: Female
  Weight: 66 kg

DRUGS (2)
  1. LILETTA [Suspect]
     Active Substance: LEVONORGESTREL
     Indication: Product used for unknown indication
     Dosage: TIME INTERVAL: AS NECESSARY
     Route: 015
     Dates: start: 20250415, end: 20250724
  2. LILETTA [Suspect]
     Active Substance: LEVONORGESTREL
     Dosage: TIME INTERVAL: AS NECESSARY: FIRST ADMIN DATE 2025
     Route: 015

REACTIONS (2)
  - Uterine perforation [Unknown]
  - Device dislocation [Unknown]

NARRATIVE: CASE EVENT DATE: 20250611
